FAERS Safety Report 7771755-3 (Version None)
Quarter: 2011Q3

REPORT INFORMATION
  Report Type: 
  Country: None (occurrence: None)
  Receive Date: 20110922
  Receipt Date: 20110920
  Transmission Date: 20111222
  Serious: Yes (Hospitalization)
  Sender: FDA-Public Use
  Company Number: IE-EISAI INC-E2080-00407-SPO-IE

PATIENT
  Age: 28 Month
  Sex: Male

DRUGS (14)
  1. INOVELON [Suspect]
     Indication: EPILEPSY
     Dosage: 200 MG (2 IN 1 DAY)
     Route: 048
     Dates: start: 20110601, end: 20110701
  2. INOVELON [Suspect]
     Dosage: 300 MG (2 IN 1 DAY)
     Route: 048
     Dates: start: 20110701, end: 20110807
  3. VALPROATE SODIUM [Concomitant]
     Dosage: DOSE INCREASED
     Route: 048
     Dates: start: 20110501, end: 20110626
  4. LANSOPRAZOLE [Concomitant]
     Dosage: 15 MG
     Route: 048
  5. RANITIDINE [Concomitant]
     Route: 048
  6. CLONAZEPAM [Concomitant]
     Dosage: 0.25 MG
  7. VALPROATE SODIUM [Concomitant]
     Route: 048
     Dates: start: 20110627, end: 20110101
  8. CARBAMAZEPINE [Concomitant]
     Dosage: 120 MG
  9. PHENOBARBITAL TAB [Concomitant]
     Dosage: 30 MG
  10. TOPIRAMATE [Concomitant]
     Dosage: 12.5 MG
  11. MELATONIN [Concomitant]
     Dosage: 2 MG
  12. VALPROATE SODIUM [Concomitant]
     Dosage: DOSE INCREASED
     Route: 048
     Dates: start: 20110401, end: 20110501
  13. VALPROATE SODIUM [Concomitant]
     Dosage: 100 MG
     Dates: start: 20110101, end: 20110101
  14. VALPROATE SODIUM [Concomitant]
     Indication: EPILEPSY
     Dosage: UNKNOWN
     Route: 048
     Dates: start: 20110301, end: 20110401

REACTIONS (4)
  - HYPERTONIA [None]
  - CONVULSION [None]
  - MUSCLE RIGIDITY [None]
  - STATUS EPILEPTICUS [None]
